FAERS Safety Report 18900650 (Version 1)
Quarter: 2021Q1

REPORT INFORMATION
  Report Type: Spontaneous
  Country: GB (occurrence: GB)
  Receive Date: 20210217
  Receipt Date: 20210217
  Transmission Date: 20210420
  Serious: Yes (Disabling)
  Sender: FDA-Public Use
  Company Number: GB-JNJFOC-20210217476

PATIENT
  Age: 27 Year
  Sex: Female
  Weight: 75 kg

DRUGS (3)
  1. PROPRANOLOL [Concomitant]
     Active Substance: PROPRANOLOL HYDROCHLORIDE
     Indication: ANXIETY
     Route: 065
     Dates: start: 20180101
  2. PARACETAMOL [Suspect]
     Active Substance: ACETAMINOPHEN
     Indication: PRODUCT USED FOR UNKNOWN INDICATION
     Route: 065
  3. ASTRAZENECA COVID?19 VACCINE [Suspect]
     Active Substance: AZD-1222
     Indication: PRODUCT USED FOR UNKNOWN INDICATION
     Route: 065
     Dates: start: 20210205

REACTIONS (8)
  - Nausea [Recovered/Resolved]
  - Back pain [Recovering/Resolving]
  - Pyrexia [Recovering/Resolving]
  - Lymphadenopathy [Recovering/Resolving]
  - Pain [Not Recovered/Not Resolved]
  - Abdominal pain upper [Recovered/Resolved]
  - Insomnia [Not Recovered/Not Resolved]
  - Chest pain [Recovered/Resolved]

NARRATIVE: CASE EVENT DATE: 20210205
